FAERS Safety Report 19442353 (Version 1)
Quarter: 2021Q2

REPORT INFORMATION
  Report Type: Spontaneous
  Country: FR (occurrence: FR)
  Receive Date: 20210621
  Receipt Date: 20210621
  Transmission Date: 20210717
  Serious: Yes (Hospitalization, Other)
  Sender: FDA-Public Use
  Company Number: FR-PURDUE-USA-2021-0271892

PATIENT
  Age: 88 Year
  Sex: Female

DRUGS (1)
  1. OXYCONTIN [Suspect]
     Active Substance: OXYCODONE HYDROCHLORIDE
     Indication: PAIN
     Dosage: 1 UNIT, DAILY (20 MG PAR JOUR) STRENGTH 20 MG
     Route: 048
     Dates: start: 20200923, end: 20200925

REACTIONS (3)
  - Confusional state [Recovered/Resolved]
  - Persecutory delusion [Recovered/Resolved]
  - Hallucinations, mixed [Recovered/Resolved]

NARRATIVE: CASE EVENT DATE: 20200925
